FAERS Safety Report 4446864-7 (Version None)
Quarter: 2004Q3

REPORT INFORMATION
  Report Type: 
  Country: None (occurrence: None)
  Receive Date: 20040908
  Receipt Date: 20040826
  Transmission Date: 20050211
  Serious: Yes (Hospitalization, Other)
  Sender: FDA-Public Use
  Company Number: 2004230392DE

PATIENT
  Age: 50 Year
  Sex: Male
  Weight: 85.6 kg

DRUGS (4)
  1. GENOTROPIN [Suspect]
     Indication: HYPOPITUITARISM
     Dosage: 0.2 MG, QD, SUBCUTANEOUS
     Route: 058
     Dates: start: 20020515, end: 20040827
  2. TESTOSTERONE [Concomitant]
  3. HYDROCORTISONE [Concomitant]
  4. LEVOTHYROXINE SODIUM [Concomitant]

REACTIONS (3)
  - NEOPLASM RECURRENCE [None]
  - PITUITARY TUMOUR BENIGN [None]
  - VISUAL PATHWAY DISORDER [None]
